FAERS Safety Report 25505021 (Version 2)
Quarter: 2025Q3

REPORT INFORMATION
  Report Type: Spontaneous
  Country: JP (occurrence: JP)
  Receive Date: 20250702
  Receipt Date: 20250813
  Transmission Date: 20251020
  Serious: Yes (Other)
  Sender: EISAI
  Company Number: JP-Eisai-EC-2025-192583

PATIENT
  Sex: Female

DRUGS (8)
  1. LENVIMA [Suspect]
     Active Substance: LENVATINIB
     Indication: Endometrial cancer
     Dates: start: 20241108, end: 202501
  2. LENVIMA [Suspect]
     Active Substance: LENVATINIB
     Dates: start: 202501, end: 202506
  3. KEYTRUDA [Suspect]
     Active Substance: PEMBROLIZUMAB
     Indication: Endometrial cancer
     Dates: start: 20241108, end: 202506
  4. OLMESARTAN [Concomitant]
     Active Substance: OLMESARTAN
     Indication: Blood pressure increased
  5. MYSER [Concomitant]
     Indication: Palmar-plantar erythrodysaesthesia syndrome
  6. LOPEMIN [Concomitant]
     Indication: Diarrhoea
     Dates: start: 202501
  7. LEVOTHYROXINE SODIUM [Concomitant]
     Active Substance: LEVOTHYROXINE SODIUM
     Indication: Hypothyroidism
  8. LACTIC ACID BACTERIA [Concomitant]
     Indication: Diarrhoea

REACTIONS (1)
  - HER2 positive breast cancer [Recovering/Resolving]

NARRATIVE: CASE EVENT DATE: 20250601
